FAERS Safety Report 8104388 (Version 3)
Quarter: 2014Q2

REPORT INFORMATION
  Report Type: Spontaneous
  Country: US (occurrence: US)
  Receive Date: 20110824
  Receipt Date: 20140611
  Transmission Date: 20141212
  Serious: Yes (Hospitalization)
  Sender: FDA-Public Use
  Company Number: US-GLAXOSMITHKLINE-A0934822A

PATIENT
  Sex: Male

DRUGS (1)
  1. AVANDIA [Suspect]
     Indication: DIABETES MELLITUS
     Dosage: 8MG PER DAY
     Route: 048
     Dates: start: 20050604, end: 20091201

REACTIONS (4)
  - Myocardial infarction [Not Recovered/Not Resolved]
  - Cerebrovascular accident [Unknown]
  - Coronary artery disease [Unknown]
  - Ataxia [Unknown]
